FAERS Safety Report 22611360 (Version 2)
Quarter: 2023Q2

REPORT INFORMATION
  Report Type: Report from Study
  Country: FR (occurrence: FR)
  Receive Date: 20230616
  Receipt Date: 20230621
  Transmission Date: 20230721
  Serious: Yes (Hospitalization)
  Sender: FDA-Public Use
  Company Number: FR-ROCHE-3363858

PATIENT
  Age: 73 Year
  Sex: Female
  Weight: 81.8 kg

DRUGS (12)
  1. RITUXIMAB [Suspect]
     Active Substance: RITUXIMAB
     Indication: Follicular lymphoma stage IV
     Dosage: 375 MG/M2, WEEKLY
     Route: 042
     Dates: start: 20230515
  2. LENALIDOMIDE [Suspect]
     Active Substance: LENALIDOMIDE
     Indication: Follicular lymphoma stage IV
     Dosage: 20 MG 1X/DAY, DAY 1 TO 21,
     Route: 048
     Dates: start: 20230515, end: 20230523
  3. VALIUM [Concomitant]
     Active Substance: DIAZEPAM
     Dosage: 5 MG, FREQ:24 H;
  4. VALACYCLOVIR HYDROCHLORIDE [Concomitant]
     Active Substance: VALACYCLOVIR HYDROCHLORIDE
     Dosage: 500 MG, ALTERNATE DAY
     Dates: start: 20230515
  5. CARBOXYL [Concomitant]
     Dosage: UNK
  6. SOLU-MEDROL [Concomitant]
     Active Substance: METHYLPREDNISOLONE SODIUM SUCCINATE
     Indication: Urticaria
     Dosage: 120 MG
     Dates: start: 20230515, end: 20230515
  7. CALCIUM CARBONATE [Concomitant]
     Active Substance: CALCIUM CARBONATE
     Indication: Hypovitaminosis
     Dosage: 500 MG, FREQ: 0.5 D;
  8. LEVOTHYROXINE [Concomitant]
     Active Substance: LEVOTHYROXINE
     Dosage: 100 UG, FREQ:24 H;
     Dates: start: 202107
  9. ELIQUIS [Concomitant]
     Active Substance: APIXABAN
     Dosage: 2.5 MG, ALTERNATE DAY
     Dates: start: 20230515
  10. POLYETHYLENE GLYCOLS [Concomitant]
     Active Substance: POLYETHYLENE GLYCOLS
     Dosage: 20 MG, FREQ:24 H;
     Dates: start: 2021
  11. COTRIMOXAZOLE [Concomitant]
     Active Substance: SULFAMETHOXAZOLE\TRIMETHOPRIM
     Dosage: 960 MG, EVERY 3 WEEKS
     Dates: start: 20230515
  12. POLARAMINE [Concomitant]
     Active Substance: DEXCHLORPHENIRAMINE MALEATE
     Dosage: 5 MG
     Dates: start: 20230515, end: 20230515

REACTIONS (2)
  - Rash maculo-papular [Not Recovered/Not Resolved]
  - Purpura [Not Recovered/Not Resolved]

NARRATIVE: CASE EVENT DATE: 20230520
